FAERS Safety Report 6326317-1 (Version None)
Quarter: 2009Q3

REPORT INFORMATION
  Report Type: 
  Country: None (occurrence: None)
  Receive Date: 20090821
  Receipt Date: 20090805
  Transmission Date: 20100115
  Serious: Yes (Other)
  Sender: FDA-Public Use
  Company Number: A-NJ2009-26059

PATIENT
  Age: 45 Year
  Sex: Male
  Weight: 117 kg

DRUGS (13)
  1. VENTAVIS [Suspect]
     Indication: PULMONARY HYPERTENSION
     Dosage: 5 UG, Q 2 HOURS, RESPIRATORY ; 2.5 UG, Q 2 HOURS, RESPIRATORY
     Route: 055
     Dates: start: 20090625, end: 20090626
  2. VENTAVIS [Suspect]
     Indication: PULMONARY HYPERTENSION
     Dosage: 5 UG, Q 2 HOURS, RESPIRATORY ; 2.5 UG, Q 2 HOURS, RESPIRATORY
     Route: 055
     Dates: start: 20090625, end: 20090626
  3. CIPRO [Concomitant]
  4. AMILORIDE (AMILORIDE) [Concomitant]
  5. LASIX [Concomitant]
  6. HYDROXYZINE [Concomitant]
  7. LACTULOSE [Concomitant]
  8. LOPRESSOR [Concomitant]
  9. SILYBUM MARIANUM (SILYBUM MARIANUM) [Concomitant]
  10. MVI (VITAMINS NOS) [Concomitant]
  11. XIFAXAN (RIFAXIMIN) [Concomitant]
  12. REVATIO [Concomitant]
  13. COQ10 (UBIDECARENONE) [Concomitant]

REACTIONS (9)
  - ARTHRALGIA [None]
  - HAEMATOCHEZIA [None]
  - HEADACHE [None]
  - HYPERSENSITIVITY [None]
  - INFLUENZA LIKE ILLNESS [None]
  - NAUSEA [None]
  - RASH [None]
  - RETCHING [None]
  - VOMITING [None]
